FAERS Safety Report 8336660-2 (Version None)
Quarter: 2012Q2

REPORT INFORMATION
  Report Type: 
  Country: None (occurrence: None)
  Receive Date: 20120504
  Receipt Date: 20120424
  Transmission Date: 20120825
  Serious: Yes (Hospitalization)
  Sender: FDA-Public Use
  Company Number: US-BAYER-2011-098540

PATIENT
  Age: 21 Year
  Sex: Female
  Weight: 81.633 kg

DRUGS (18)
  1. DROSPIRENONE AND ETHINYL ESTRADIOL [Suspect]
     Indication: DYSMENORRHOEA
     Dosage: UNK UNK, QD
     Route: 048
     Dates: start: 20000101, end: 20100101
  2. TEMAZEPAM [Concomitant]
     Indication: SLEEP DISORDER THERAPY
     Dosage: UNK
     Dates: start: 20090401, end: 20110501
  3. YASMIN [Suspect]
     Indication: PREMENSTRUAL SYNDROME
  4. YASMIN [Suspect]
     Indication: MENSTRUATION IRREGULAR
  5. IBUPROFEN [Concomitant]
     Dosage: 800MG TABLET AS NEEDED
     Dates: start: 20090708
  6. YAZ [Suspect]
     Indication: PREMENSTRUAL SYNDROME
  7. DROSPIRENONE AND ETHINYL ESTRADIOL [Suspect]
     Indication: MENSTRUATION IRREGULAR
  8. RESTORIL [Concomitant]
     Indication: MULTIPLE SCLEROSIS
     Dosage: 15MG CAPSULES TAKE ONE AT BEDTIME AS NEEDED
     Dates: start: 20080101
  9. VICODIN ES [Concomitant]
     Indication: PAIN
     Dosage: 7.5MG-750MG TABLET 1 TABLET EVERY 4-6 HOURS NOT TO EXCEED 5 TABLETS PER DAY.
     Dates: start: 20090708
  10. YAZ [Suspect]
     Indication: DYSMENORRHOEA
     Dosage: UNK
     Dates: start: 20000101, end: 20100101
  11. CYCLOBENZAPRINE [Concomitant]
     Indication: MULTIPLE SCLEROSIS
     Dosage: UNK
     Dates: start: 20090812
  12. YAZ [Suspect]
     Indication: MENSTRUATION IRREGULAR
  13. RESTORIL [Concomitant]
     Indication: INSOMNIA
  14. MS CONTIN [Concomitant]
     Indication: NEURALGIA
     Dosage: 30 MG, BID
  15. YASMIN [Suspect]
     Indication: DYSMENORRHOEA
     Dosage: UNK
     Dates: start: 20000101, end: 20100101
  16. DROSPIRENONE AND ETHINYL ESTRADIOL [Suspect]
     Indication: PREMENSTRUAL SYNDROME
  17. PERCOCET [Concomitant]
     Indication: MULTIPLE SCLEROSIS
     Dosage: UNK
     Dates: start: 20080101
  18. FLEXERIL [Concomitant]
     Indication: MULTIPLE SCLEROSIS
     Dosage: UNK
     Dates: start: 20090101

REACTIONS (4)
  - PAIN IN EXTREMITY [None]
  - INJURY [None]
  - DEEP VEIN THROMBOSIS [None]
  - THROMBOPHLEBITIS SUPERFICIAL [None]
